FAERS Safety Report 6958525-0 (Version None)
Quarter: 2010Q3

REPORT INFORMATION
  Report Type: 
  Country: None (occurrence: None)
  Receive Date: 20100830
  Receipt Date: 20100830
  Transmission Date: 20110219
  Serious: Yes (Other)
  Sender: FDA-Public Use
  Company Number: None

PATIENT
  Age: 43 Year
  Sex: Male
  Weight: 70.3075 kg

DRUGS (2)
  1. SULFAMETHOXAZOLE TRIMETHOPRIM [Suspect]
     Indication: PNEUMOCYSTIS JIROVECI PNEUMONIA
     Dosage: ONE DAILY PO
     Route: 048
     Dates: start: 20100819, end: 20100827
  2. SULFAMETHOXAZOLE TRIMETHOPRIM [Suspect]
     Indication: PROPHYLAXIS
     Dosage: ONE DAILY PO
     Route: 048
     Dates: start: 20100819, end: 20100827

REACTIONS (2)
  - RASH ERYTHEMATOUS [None]
  - RASH PRURITIC [None]
